FAERS Safety Report 7516067-8 (Version None)
Quarter: 2011Q2

REPORT INFORMATION
  Report Type: 
  Country: None (occurrence: None)
  Receive Date: 20110601
  Receipt Date: 20110519
  Transmission Date: 20111010
  Serious: Yes (Life-Threatening, Other)
  Sender: FDA-Public Use
  Company Number: US-ACTELION-A-US2011-44120

PATIENT

DRUGS (4)
  1. REVATIO [Concomitant]
  2. COUMADIN [Concomitant]
  3. TRACLEER [Suspect]
     Indication: PULMONARY ARTERIAL HYPERTENSION
     Dosage: UNK
     Route: 048
     Dates: start: 20100723
  4. CALCIUM CHANNEL BLOCKERS [Concomitant]

REACTIONS (4)
  - CHEMOTHERAPY [None]
  - BREAST CANCER [None]
  - COLON CANCER [None]
  - LIVER FUNCTION TEST ABNORMAL [None]
